FAERS Safety Report 5852920-9 (Version None)
Quarter: 2008Q3

REPORT INFORMATION
  Report Type: 
  Country: None (occurrence: None)
  Receive Date: 20080821
  Receipt Date: 20080813
  Transmission Date: 20090109
  Serious: Yes (Other)
  Sender: FDA-Public Use
  Company Number: US-ASTRAZENECA-2008UW16613

PATIENT
  Age: 59 Year
  Sex: Female
  Weight: 76.7 kg

DRUGS (14)
  1. ARIMIDEX [Suspect]
     Indication: BREAST CANCER
     Dosage: 1 MG
     Route: 048
     Dates: start: 20080314
  2. NEXIUM [Concomitant]
     Dosage: 40 MG
     Route: 048
  3. MULTI-VITAMIN [Concomitant]
  4. VITAMIN E [Concomitant]
  5. CALCIUM [Concomitant]
  6. FIBER POWDER [Concomitant]
  7. SINGULAIR [Concomitant]
     Dosage: 10 MG
  8. ASCORBIC ACID [Concomitant]
  9. ARTHROTEC [Concomitant]
  10. TYLENOL [Concomitant]
  11. FLONASE [Concomitant]
  12. ALBUTEROL [Concomitant]
     Dosage: AS NEEDED
  13. ALLEGRA [Concomitant]
  14. EFFEXOR XR [Concomitant]
     Dosage: 75 MG

REACTIONS (4)
  - ARTHRITIS [None]
  - FLUID RETENTION [None]
  - HOT FLUSH [None]
  - OEDEMA PERIPHERAL [None]
